FAERS Safety Report 8475162 (Version 3)
Quarter: 2012Q4

REPORT INFORMATION
  Report Type: 
  Country: US (occurrence: US)
  Receive Date: 20120324
  Receipt Date: 20120904
  Transmission Date: 20130627
  Serious: Yes (Other)
  Sender: FDA-Public Use
  Company Number: US-AMGEN-USASP2012017209

PATIENT
  Age: 0 Year
  Sex: Male

DRUGS (12)
  1. ENBREL [Suspect]
     Dosage: 50 mg, qwk
     Route: 064
     Dates: start: 201002
  2. SULPHASALAZINE [Concomitant]
     Dosage: 5 pills daily
     Dates: end: 20120127
  3. PREDNISONE [Concomitant]
     Dosage: 5 mg, daily
  4. PREDNISONE [Concomitant]
     Dosage: 10 mg, UNK
  5. PREDNISONE [Concomitant]
     Dosage: 15 mg, UNK
  6. PREDNISONE [Concomitant]
     Dosage: 20 mg, UNK
  7. FOLIC ACID [Concomitant]
     Dosage: 800 UNK, daily
  8. PRENATAL VITAMINS                  /01549301/ [Concomitant]
     Dosage: UNK UNK, qd
  9. VITAMIN D /00107901/ [Concomitant]
     Dosage: 2000 mg, qd
  10. CALCIUM [Concomitant]
     Dosage: 2000 mg, qd
  11. PREVACID [Concomitant]
     Dosage: 2 ml, qd
     Dates: start: 201204
  12. VITAMIN D3 [Concomitant]
     Dosage: 400 IU, qd
     Dates: start: 201203

REACTIONS (6)
  - Premature baby [Recovered/Resolved]
  - Body temperature fluctuation [Recovered/Resolved]
  - Feeding disorder neonatal [Recovered/Resolved]
  - Torticollis [Unknown]
  - Eczema [Unknown]
  - Milk allergy [Unknown]
